FAERS Safety Report 9645748 (Version 2)
Quarter: 2013Q4

REPORT INFORMATION
  Report Type: Spontaneous
  Country: FR (occurrence: FR)
  Receive Date: 20131025
  Receipt Date: 20131108
  Transmission Date: 20140711
  Serious: Yes (Other)
  Sender: FDA-Public Use
  Company Number: FR-JNJFOC-20131011370

PATIENT
  Age: 51 Year
  Sex: Male
  Weight: 105 kg

DRUGS (7)
  1. XEPLION [Suspect]
     Indication: SCHIZOPHRENIA
     Route: 030
     Dates: start: 20130724, end: 20130821
  2. EUPANTHOL [Concomitant]
     Route: 065
  3. NOZINAN [Concomitant]
     Dosage: INITIATED SINCE A FEW YEARS
     Route: 048
  4. PARKINANE LP [Concomitant]
     Dosage: INITIATED SINCE A FEW YEARS
     Route: 048
  5. SERESTA [Concomitant]
     Dosage: INITIATED SINCE A FEW YEARS
     Route: 065
  6. SERESTA [Concomitant]
     Dosage: INITIATED SINCE A FEW YEARS
     Route: 065
  7. TEGRETOL [Concomitant]
     Dosage: 0.5 - 0 - 1; INITIATED SINCE A FEW YEARS
     Route: 065

REACTIONS (1)
  - Pneumonia [Recovered/Resolved with Sequelae]
